FAERS Safety Report 25317222 (Version 1)
Quarter: 2025Q2

REPORT INFORMATION
  Report Type: Spontaneous
  Country: US (occurrence: US)
  Receive Date: 20250515
  Receipt Date: 20250515
  Transmission Date: 20250717
  Serious: No
  Sender: ROCHE
  Company Number: US-ROCHE-10000270557

PATIENT
  Age: 67 Year
  Sex: Male

DRUGS (15)
  1. TOCILIZUMAB [Suspect]
     Active Substance: TOCILIZUMAB
     Indication: Cytokine release syndrome
     Route: 065
  2. OLAPARIB [Suspect]
     Active Substance: OLAPARIB
     Indication: Prostate cancer
     Route: 065
  3. CYCLOPHOSPHAMIDE [Suspect]
     Active Substance: CYCLOPHOSPHAMIDE
     Indication: Prostate cancer
     Route: 065
  4. METHYLPREDNISOLONE [Suspect]
     Active Substance: METHYLPREDNISOLONE
     Indication: Cytokine release syndrome
     Route: 065
  5. ANAKINRA [Suspect]
     Active Substance: ANAKINRA
     Indication: Cytokine release syndrome
     Route: 065
  6. DEGARELIX [Concomitant]
     Active Substance: DEGARELIX
  7. APALUTAMIDE [Concomitant]
     Active Substance: APALUTAMIDE
  8. FLUDARABINE [Concomitant]
     Active Substance: FLUDARABINE PHOSPHATE
  9. DEXAMETHASONE [Concomitant]
     Active Substance: DEXAMETHASONE
     Indication: Cytokine release syndrome
  10. LEVETIRACETAM [Concomitant]
     Active Substance: LEVETIRACETAM
  11. RIMIDUCID [Concomitant]
     Active Substance: RIMIDUCID
  12. SILTUXIMAB [Concomitant]
     Active Substance: SILTUXIMAB
     Indication: Cytokine release syndrome
  13. RUXOLITINIB [Concomitant]
     Active Substance: RUXOLITINIB
     Indication: Cytokine release syndrome
  14. GAMIFANT [Concomitant]
     Active Substance: EMAPALUMAB-LZSG
  15. NOREPINEPHRINE [Concomitant]
     Active Substance: NOREPINEPHRINE

REACTIONS (1)
  - Bacteraemia [Unknown]
